APPROVED DRUG PRODUCT: HALOPERIDOL
Active Ingredient: HALOPERIDOL
Strength: 10MG
Dosage Form/Route: TABLET;ORAL
Application: A071220 | Product #001
Applicant: DURAMED PHARMACEUTICALS INC SUB BARR LABORATORIES INC
Approved: Jul 7, 1987 | RLD: No | RS: No | Type: DISCN